FAERS Safety Report 15948359 (Version 1)
Quarter: 2019Q1

REPORT INFORMATION
  Report Type: Spontaneous
  Country: US (occurrence: US)
  Receive Date: 20190212
  Receipt Date: 20190212
  Transmission Date: 20190417
  Serious: No
  Sender: FDA-Public Use
  Company Number: US-009507513-1902USA002289

PATIENT
  Sex: Female
  Weight: 106.12 kg

DRUGS (1)
  1. ETONOGESTREL IMPLANT- UNKNOWN [Suspect]
     Active Substance: ETONOGESTREL
     Indication: CONTRACEPTION
     Dosage: 1 IMPLANT
     Dates: start: 201502

REACTIONS (4)
  - Weight fluctuation [Unknown]
  - Complication of device removal [Not Recovered/Not Resolved]
  - Incorrect product administration duration [Unknown]
  - Device deployment issue [Not Recovered/Not Resolved]

NARRATIVE: CASE EVENT DATE: 2015
